FAERS Safety Report 16189148 (Version 1)
Quarter: 2019Q2

REPORT INFORMATION
  Report Type: Spontaneous
  Country: AR (occurrence: AR)
  Receive Date: 20190412
  Receipt Date: 20190412
  Transmission Date: 20190711
  Serious: Yes (Hospitalization)
  Sender: FDA-Public Use
  Company Number: AR-TEVA-2019-AR-1038374

PATIENT
  Age: 34 Year
  Sex: Female

DRUGS (3)
  1. PREDNISONE. [Suspect]
     Active Substance: PREDNISONE
     Route: 048
  2. METHOTREXATE. [Suspect]
     Active Substance: METHOTREXATE
     Indication: BEHCET^S SYNDROME
     Route: 048
  3. PREDNISONE. [Suspect]
     Active Substance: PREDNISONE
     Indication: BEHCET^S SYNDROME
     Dosage: THEREAFTER REDUCED
     Route: 048

REACTIONS (4)
  - Infection reactivation [Recovering/Resolving]
  - Eye infection syphilitic [Recovering/Resolving]
  - Syphilis [Recovering/Resolving]
  - Chorioretinopathy [Recovering/Resolving]
